FAERS Safety Report 20713781 (Version 3)
Quarter: 2022Q2

REPORT INFORMATION
  Report Type: Spontaneous
  Country: US (occurrence: US)
  Receive Date: 20220415
  Receipt Date: 20220525
  Transmission Date: 20220720
  Serious: Yes (Hospitalization, Other)
  Sender: FDA-Public Use
  Company Number: US-SANOFI-01057426

PATIENT
  Age: 56 Year
  Sex: Male

DRUGS (1)
  1. LANTUS SOLOSTAR [Suspect]
     Active Substance: INSULIN GLARGINE
     Indication: Type 2 diabetes mellitus
     Dosage: 35 UNITS AT NIGHT 5 UNITS IN THE MORNING DRUG INTERVAL DOSAGE : TWICE DAILY DRUG TREATMENT DURATION:

REACTIONS (14)
  - Nausea [Unknown]
  - Malaise [Unknown]
  - Neuropathy peripheral [Unknown]
  - Parkinson^s disease [Unknown]
  - Blood glucose increased [Unknown]
  - Burning sensation [Unknown]
  - Pain [Unknown]
  - Hypoaesthesia [Unknown]
  - Movement disorder [Unknown]
  - Asthenia [Unknown]
  - Back pain [Unknown]
  - Product prescribing issue [Unknown]
  - Inappropriate schedule of product administration [Unknown]
  - Product dose omission issue [Unknown]
